FAERS Safety Report 13106920 (Version 1)
Quarter: 2017Q1

REPORT INFORMATION
  Report Type: Spontaneous
  Country: US (occurrence: US)
  Receive Date: 20170111
  Receipt Date: 20170111
  Transmission Date: 20170428
  Serious: No
  Sender: FDA-Public Use
  Company Number: US-BIOMARINAP-US-2017-112336

PATIENT
  Sex: Male
  Weight: 24.3 kg

DRUGS (1)
  1. VIMIZIM [Suspect]
     Active Substance: ELOSULFASE ALFA
     Indication: MUCOPOLYSACCHARIDOSIS IV
     Dosage: UNK, QW
     Route: 065
     Dates: start: 20140318

REACTIONS (4)
  - Influenza like illness [Unknown]
  - Oropharyngeal pain [Unknown]
  - Odynophagia [Unknown]
  - Dysphagia [Unknown]
